FAERS Safety Report 9739320 (Version 1)
Quarter: 2013Q4

REPORT INFORMATION
  Report Type: Spontaneous
  Country: US (occurrence: US)
  Receive Date: 20131209
  Receipt Date: 20131209
  Transmission Date: 20140711
  Serious: No
  Sender: FDA-Public Use
  Company Number: US-GLAXOSMITHKLINE-A1044367A

PATIENT
  Age: 28 Year
  Sex: Female

DRUGS (3)
  1. FABIOR [Suspect]
     Indication: ACNE
     Dosage: 1APP AT NIGHT
     Route: 061
     Dates: start: 20130925
  2. ACZONE [Concomitant]
     Route: 061
  3. DOXYCYCLINE [Concomitant]

REACTIONS (3)
  - Erythema [Unknown]
  - Skin irritation [Unknown]
  - Dry skin [Unknown]
